FAERS Safety Report 11221519 (Version 3)
Quarter: 2016Q2

REPORT INFORMATION
  Report Type: Spontaneous
  Country: US (occurrence: US)
  Receive Date: 20150626
  Receipt Date: 20160603
  Transmission Date: 20160815
  Serious: Yes (Hospitalization, Other)
  Sender: FDA-Public Use
  Company Number: US-DSJP-DSU-2015-119471

PATIENT
  Age: 69 Year
  Sex: Female
  Weight: 71.66 kg

DRUGS (4)
  1. LEVOTHYROXINE. [Concomitant]
     Active Substance: LEVOTHYROXINE
     Indication: PRODUCT USED FOR UNKNOWN INDICATION
     Dosage: 50 ?G, QD
     Dates: start: 2005
  2. HYDROCODONE [Concomitant]
     Active Substance: HYDROCODONE
     Indication: PRODUCT USED FOR UNKNOWN INDICATION
     Dosage: 10/325 MG, QD
     Dates: start: 1995
  3. ESCITALOPRAM [Concomitant]
     Active Substance: ESCITALOPRAM OXALATE
     Indication: PRODUCT USED FOR UNKNOWN INDICATION
     Dosage: 20 MG, QD
     Dates: start: 1996
  4. BENICAR [Suspect]
     Active Substance: OLMESARTAN MEDOXOMIL
     Indication: HYPERTENSION
     Dosage: 20 MG 1/2 TAB, QD
     Route: 048
     Dates: start: 20130107, end: 20140601

REACTIONS (9)
  - Acute kidney injury [Unknown]
  - Large intestine polyp [Recovered/Resolved]
  - Retching [Unknown]
  - Malabsorption [Unknown]
  - Dizziness [Unknown]
  - Drug administration error [Recovered/Resolved]
  - Diverticulum [Unknown]
  - Hiatus hernia [Unknown]
  - Constipation [Unknown]

NARRATIVE: CASE EVENT DATE: 2013
